FAERS Safety Report 18955239 (Version 2)
Quarter: 2021Q1

REPORT INFORMATION
  Report Type: Report from Study
  Country: GB (occurrence: GB)
  Receive Date: 20210301
  Receipt Date: 20210303
  Transmission Date: 20210420
  Serious: Yes (Death)
  Sender: FDA-Public Use
  Company Number: GB-ROCHE-2776820

PATIENT
  Age: 74 Year
  Sex: Female

DRUGS (1)
  1. TENECTEPLASE [Suspect]
     Active Substance: TENECTEPLASE
     Indication: ISCHAEMIC STROKE
     Route: 042
     Dates: start: 20171112

REACTIONS (6)
  - Neurological decompensation [Fatal]
  - Pneumonia aspiration [Fatal]
  - Cerebral infarction [Fatal]
  - Acute myocardial infarction [Fatal]
  - Coronary artery disease [Fatal]
  - Breast cancer female [Fatal]

NARRATIVE: CASE EVENT DATE: 20171113
